FAERS Safety Report 8073201-1 (Version None)
Quarter: 2012Q1

REPORT INFORMATION
  Report Type: 
  Country: None (occurrence: None)
  Receive Date: 20120126
  Receipt Date: 20120113
  Transmission Date: 20120608
  Serious: Yes (Hospitalization)
  Sender: FDA-Public Use
  Company Number: US-ELI_LILLY_AND_COMPANY-US201109004474

PATIENT
  Sex: Male
  Weight: 83.447 kg

DRUGS (1)
  1. FORTEO [Suspect]
     Indication: OSTEOPOROSIS
     Dosage: 20 UG, QD
     Route: 065
     Dates: start: 20110720

REACTIONS (3)
  - HYPERTENSION [None]
  - HIATUS HERNIA [None]
  - BLOOD PRESSURE DIFFERENCE OF EXTREMITIES [None]
